FAERS Safety Report 6553799-2 (Version None)
Quarter: 2010Q1

REPORT INFORMATION
  Report Type: 
  Country: None (occurrence: None)
  Receive Date: 20100125
  Receipt Date: 20100125
  Transmission Date: 20100710
  Serious: Yes (Disabling)
  Sender: FDA-Public Use
  Company Number: None

PATIENT
  Sex: Female
  Weight: 65.7716 kg

DRUGS (2)
  1. ACTONEL [Suspect]
     Indication: OSTEOPOROSIS
     Dosage: 1 PILL PER WK EACH WK. YR 2003 OR 2004 UNTIL 2008
     Dates: end: 20080101
  2. BONIVA [Suspect]
     Indication: OSTEOPOROSIS
     Dosage: EACH MONTH
     Dates: start: 20080101, end: 20091201

REACTIONS (1)
  - TEMPOROMANDIBULAR JOINT SYNDROME [None]
